FAERS Safety Report 23719876 (Version 2)
Quarter: 2024Q2

REPORT INFORMATION
  Report Type: Spontaneous
  Country: FI (occurrence: FI)
  Receive Date: 20240408
  Receipt Date: 20240418
  Transmission Date: 20240716
  Serious: Yes (Other)
  Sender: FDA-Public Use
  Company Number: FI-ELI_LILLY_AND_COMPANY-FI202306004886

PATIENT
  Age: 54 Year
  Sex: Female

DRUGS (9)
  1. CYMBALTA [Suspect]
     Active Substance: DULOXETINE HYDROCHLORIDE
     Indication: Oesophageal pain
     Dosage: 30 MG, UNKNOWN
     Route: 065
     Dates: start: 202305
  2. CYMBALTA [Suspect]
     Active Substance: DULOXETINE HYDROCHLORIDE
     Dosage: 30 MG, UNKNOWN
     Route: 065
     Dates: start: 202306
  3. LYRICA [Concomitant]
     Active Substance: PREGABALIN
     Indication: Oesophageal pain
     Dosage: 25 MG, UNKNOWN
     Route: 065
  4. NEXIUM I.V. [Concomitant]
     Active Substance: ESOMEPRAZOLE SODIUM
     Indication: Oesophageal pain
     Dosage: 40 MG, DAILY
     Route: 065
     Dates: start: 2015
  5. GAVISCON [CALCIUM CARBONATE;SODIUM ALGINATE;S [Concomitant]
     Indication: Oesophageal pain
     Dosage: UNK, BEFORE BED
     Route: 065
  6. ZOLMITRIPTAN [Concomitant]
     Active Substance: ZOLMITRIPTAN
     Indication: Migraine
     Dosage: 2.5 MG, UNKNOWN
     Route: 065
  7. PANADOL [Concomitant]
     Active Substance: ACETAMINOPHEN
     Indication: Product used for unknown indication
     Dosage: UNK, RARELY
     Route: 065
  8. LACTIC ACID [Concomitant]
     Active Substance: LACTIC ACID
     Indication: Product used for unknown indication
     Dosage: UNK, UNKNOWN
     Route: 065
  9. CHOLECALCIFEROL [Concomitant]
     Active Substance: CHOLECALCIFEROL
     Indication: Product used for unknown indication
     Dosage: UNK, UNKNOWN
     Route: 065

REACTIONS (16)
  - Renal failure [Unknown]
  - Mobility decreased [Recovering/Resolving]
  - Urine output decreased [Unknown]
  - Hypometabolism [Recovered/Resolved]
  - Gastrointestinal disorder [Recovered/Resolved]
  - Bladder disorder [Recovered/Resolved]
  - Off label use [Unknown]
  - Blood iron decreased [Unknown]
  - Fatigue [Recovering/Resolving]
  - Dizziness [Unknown]
  - Dry mouth [Unknown]
  - Constipation [Unknown]
  - Headache [Recovering/Resolving]
  - Hypersomnia [Recovered/Resolved]
  - Somnolence [Recovered/Resolved]
  - Nausea [Recovered/Resolved]

NARRATIVE: CASE EVENT DATE: 20230501
